FAERS Safety Report 10268088 (Version 1)
Quarter: 2014Q2

REPORT INFORMATION
  Report Type: Spontaneous
  Country: US (occurrence: None)
  Receive Date: 20140625
  Receipt Date: 20140625
  Transmission Date: 20141212
  Serious: Yes (Death)
  Sender: FDA-Public Use
  Company Number: ABR_01708_2014

PATIENT
  Age: 89 Year
  Sex: Female

DRUGS (1)
  1. EDARBYCLOR [Suspect]
     Indication: HYPERTENSION
     Dosage: 1 DF 1X, {40/25 MG, TAKEN ONCE]
     Route: 048
     Dates: start: 20140505, end: 20140505

REACTIONS (1)
  - Death [None]
